FAERS Safety Report 12890161 (Version 1)
Quarter: 2016Q4

REPORT INFORMATION
  Report Type: Report from Study
  Country: None (occurrence: US)
  Receive Date: 20161027
  Receipt Date: 20161027
  Transmission Date: 20170207
  Serious: Yes (Hospitalization)
  Sender: FDA-Public Use
  Company Number: US-ABBVIE-16K-163-1748750-00

PATIENT
  Age: 49 Year
  Sex: Male
  Weight: 108.96 kg

DRUGS (4)
  1. FOLIC ACID. [Concomitant]
     Active Substance: FOLIC ACID
     Indication: PRODUCT USED FOR UNKNOWN INDICATION
     Dates: end: 201609
  2. HUMIRA [Suspect]
     Active Substance: ADALIMUMAB
     Indication: PSORIASIS
     Route: 058
  3. HUMIRA [Suspect]
     Active Substance: ADALIMUMAB
     Route: 058
     Dates: end: 20160901
  4. METHOTREXATE. [Concomitant]
     Active Substance: METHOTREXATE
     Indication: PRODUCT USED FOR UNKNOWN INDICATION
     Dates: end: 201609

REACTIONS (7)
  - Pulmonary mass [Recovering/Resolving]
  - Upper respiratory tract infection [Recovering/Resolving]
  - Infection [Not Recovered/Not Resolved]
  - Fatigue [Recovering/Resolving]
  - Bronchopulmonary aspergillosis [Recovering/Resolving]
  - Cough [Recovering/Resolving]
  - Hepatic enzyme increased [Unknown]

NARRATIVE: CASE EVENT DATE: 2016
